FAERS Safety Report 21576975 (Version 1)
Quarter: 2022Q4

REPORT INFORMATION
  Report Type: Spontaneous
  Country: DE (occurrence: DE)
  Receive Date: 20221110
  Receipt Date: 20221110
  Transmission Date: 20230113
  Serious: Yes (Hospitalization)
  Sender: FDA-Public Use
  Company Number: DE-ADRED-07262-01

PATIENT
  Age: 83 Year
  Sex: Male
  Weight: 100 kg

DRUGS (3)
  1. FENTANYL [Suspect]
     Active Substance: FENTANYL
     Indication: Product used for unknown indication
     Dosage: 50 ?G/H, PFLASTER TRANSDERMAL
     Route: 062
  2. AZATHIOPRINE [Suspect]
     Active Substance: AZATHIOPRINE
     Indication: Product used for unknown indication
     Dosage: UNK
     Route: 048
  3. MORPHINE [Suspect]
     Active Substance: MORPHINE
     Indication: Product used for unknown indication
     Dosage: UNK
     Route: 048

REACTIONS (6)
  - Disturbance in attention [Unknown]
  - Somnolence [Unknown]
  - Septic shock [Unknown]
  - Breath sounds abnormal [Unknown]
  - Pneumonia aspiration [Unknown]
  - Product administration error [Unknown]
